FAERS Safety Report 19373245 (Version 1)
Quarter: 2021Q2

REPORT INFORMATION
  Report Type: Spontaneous
  Country: US (occurrence: US)
  Receive Date: 20210604
  Receipt Date: 20210604
  Transmission Date: 20210717
  Serious: No
  Sender: FDA-Public Use
  Company Number: US-SA-2021SA184836

PATIENT
  Age: 21 Year
  Sex: Female

DRUGS (1)
  1. KEVZARA [Suspect]
     Active Substance: SARILUMAB
     Indication: JUVENILE IDIOPATHIC ARTHRITIS
     Dosage: 200 MG, QOW
     Route: 058
     Dates: start: 202009

REACTIONS (2)
  - Product use in unapproved indication [Unknown]
  - Injection site reaction [Unknown]

NARRATIVE: CASE EVENT DATE: 202009
